FAERS Safety Report 25657092 (Version 1)
Quarter: 2025Q3

REPORT INFORMATION
  Report Type: Spontaneous
  Country: CN (occurrence: CN)
  Receive Date: 20250808
  Receipt Date: 20250808
  Transmission Date: 20251021
  Serious: Yes (Life-Threatening, Hospitalization, Other)
  Sender: ALKEM
  Company Number: CN-ALKEM LABORATORIES LIMITED-CN-ALKEM-2025-08198

PATIENT
  Age: 32 Year
  Sex: Female

DRUGS (1)
  1. AMLODIPINE BESYLATE [Suspect]
     Active Substance: AMLODIPINE BESYLATE
     Indication: Product used for unknown indication
     Route: 048
     Dates: start: 20240301

REACTIONS (18)
  - Respiratory failure [Recovered/Resolved]
  - Circulatory collapse [Recovered/Resolved]
  - Cardiovascular disorder [Recovered/Resolved]
  - Tachypnoea [Recovered/Resolved]
  - Cardiac contractility decreased [Recovered/Resolved]
  - Shock [Recovered/Resolved]
  - Hypoxia [Recovered/Resolved]
  - Cyanosis [Recovered/Resolved]
  - Harlequin syndrome [Recovered/Resolved]
  - Blood lactic acid increased [Recovered/Resolved]
  - Cardiac dysfunction [Recovered/Resolved]
  - Pulmonary oedema [Recovered/Resolved]
  - Hypotension [Recovered/Resolved]
  - Blood pressure decreased [Recovered/Resolved]
  - Somnolence [Recovered/Resolved]
  - Overdose [Recovered/Resolved]
  - Toxicity to various agents [Recovered/Resolved]
  - Drug level increased [Recovered/Resolved]
